FAERS Safety Report 7052250-6 (Version None)
Quarter: 2010Q4

REPORT INFORMATION
  Report Type: 
  Country: None (occurrence: None)
  Receive Date: 20101018
  Receipt Date: 20101018
  Transmission Date: 20110411
  Serious: Yes (Hospitalization)
  Sender: FDA-Public Use
  Company Number: None

PATIENT
  Age: 54 Year
  Sex: Female

DRUGS (1)
  1. RECLAST [Suspect]
     Indication: OSTEOPOROSIS
     Dosage: 5 MG ONCE IV
     Route: 042
     Dates: start: 20100806, end: 20100806

REACTIONS (3)
  - ARTHRALGIA [None]
  - HYPERREFLEXIA [None]
  - MUSCLE TWITCHING [None]
